FAERS Safety Report 6431757-6 (Version None)
Quarter: 2009Q4

REPORT INFORMATION
  Report Type: 
  Country: None (occurrence: None)
  Receive Date: 20091104
  Receipt Date: 20090729
  Transmission Date: 20100525
  Serious: Yes (Death, Life-Threatening, Hospitalization)
  Sender: FDA-Public Use
  Company Number: F03200900088

PATIENT
  Age: 70 Year
  Sex: Male

DRUGS (14)
  1. FLUDARABINE PHOSPHATE [Suspect]
     Indication: PERIPHERAL T-CELL LYMPHOMA UNSPECIFIED
     Dosage: 50 MG QD ORAL
     Route: 048
     Dates: start: 20080729
  2. CYCLOPHOSPHAMIDE [Suspect]
     Indication: PERIPHERAL T-CELL LYMPHOMA UNSPECIFIED
     Dosage: 200 MG QD ORAL
     Route: 048
     Dates: start: 20080729
  3. ITRACONAZOLE [Suspect]
     Indication: ANTIFUNGAL PROPHYLAXIS
     Dosage: 200 MG QD INTRAVENOUS NOS
     Route: 042
     Dates: start: 20080802
  4. NEUTROGIN - (LENOGRASTIM) - UNKNOWN - UNIT DOSE : UNKNOWN [Suspect]
     Indication: NEUTROPHIL COUNT DECREASED
     Dosage: 250 MCG QD INTRAVENOUS NOS
     Route: 042
     Dates: start: 20080802
  5. MAXIPIME [Suspect]
     Indication: FEBRILE NEUTROPENIA
     Dosage: 4 G QD INTRAVENOUS NOS
     Route: 042
     Dates: start: 20080802
  6. MAXIPIME [Suspect]
     Indication: PROPHYLAXIS
     Dosage: 4 G QD INTRAVENOUS NOS
     Route: 042
     Dates: start: 20080802
  7. MEROPENEM [Suspect]
     Indication: FEBRILE NEUTROPENIA
     Dosage: 2 G QD INTRAVENOUS NOS
     Route: 042
     Dates: start: 20080820
  8. MEROPENEM [Suspect]
     Indication: PROPHYLAXIS
     Dosage: 2 G QD INTRAVENOUS NOS
     Route: 042
     Dates: start: 20080820
  9. VORICONAZOLE [Suspect]
     Indication: ANTIFUNGAL PROPHYLAXIS
     Dosage: 400 MG QD INTRAVENOUS NOS
     Route: 042
     Dates: start: 20080917
  10. CARBENIN - UNKNOWN - UNIT DOSE : UNKNOWN [Suspect]
     Indication: PNEUMONIA
     Dosage: 2 G QD INTRAVENOUS NOS
     Route: 042
     Dates: start: 20080917
  11. CIPROFLOXACIN HYDROCHLORIDE [Suspect]
     Indication: PNEUMONIA
     Dosage: 600 MG QD INTRAVENOUS DRIP
     Route: 041
     Dates: start: 20080921
  12. DOXORUBICIN HCL [Concomitant]
  13. VINCRISTINE [Concomitant]
  14. PREDNISOLONE [Concomitant]

REACTIONS (10)
  - ANAEMIA [None]
  - BLOOD ALKALINE PHOSPHATASE INCREASED [None]
  - CYSTITIS HAEMORRHAGIC [None]
  - GAMMA-GLUTAMYLTRANSFERASE INCREASED [None]
  - HYPOALBUMINAEMIA [None]
  - LYMPHOCYTE COUNT DECREASED [None]
  - NEUTROPHIL COUNT DECREASED [None]
  - PNEUMONIA [None]
  - RENAL DISORDER [None]
  - VIRAL INFECTION [None]
